FAERS Safety Report 10711975 (Version 2)
Quarter: 2015Q1

REPORT INFORMATION
  Report Type: Report from Study
  Country: US (occurrence: US)
  Receive Date: 20150114
  Receipt Date: 20150120
  Transmission Date: 20150721
  Serious: Yes (Congenital Anomaly, Other)
  Sender: FDA-Public Use
  Company Number: US-GILEAD-2015-0130755

PATIENT
  Sex: Male

DRUGS (2)
  1. EMTRICITABINE/RILPIVIRINE/TENOFOVIR DF [Suspect]
     Active Substance: EMTRICITABINE\RILPIVIRINE\TENOFOVIR DISOPROXIL FUMARATE
     Indication: HIV INFECTION
     Dosage: 1 DF, QD
     Route: 064
     Dates: end: 20140930
  2. COCAINE [Concomitant]
     Active Substance: COCAINE
     Route: 064

REACTIONS (5)
  - Atrial septal defect [Unknown]
  - Fallot^s tetralogy [Unknown]
  - DiGeorge^s syndrome [Unknown]
  - Congenital pulmonary valve atresia [Unknown]
  - Patent ductus arteriosus [Unknown]
